FAERS Safety Report 11120063 (Version 2)
Quarter: 2015Q3

REPORT INFORMATION
  Report Type: Report from Study
  Country: CA (occurrence: CA)
  Receive Date: 20150518
  Receipt Date: 20150903
  Transmission Date: 20151125
  Serious: Yes (Hospitalization)
  Sender: FDA-Public Use
  Company Number: CA-JNJFOC-20150510643

PATIENT
  Age: 66 Year
  Sex: Female
  Weight: 79 kg

DRUGS (2)
  1. IMURAN [Concomitant]
     Active Substance: AZATHIOPRINE
     Route: 048
  2. REMICADE [Suspect]
     Active Substance: INFLIXIMAB
     Indication: CROHN^S DISEASE
     Route: 042
     Dates: start: 2008

REACTIONS (2)
  - Umbilical hernia [Recovered/Resolved]
  - Colectomy [Unknown]

NARRATIVE: CASE EVENT DATE: 201404
